FAERS Safety Report 10591146 (Version 1)
Quarter: 2014Q4

REPORT INFORMATION
  Report Type: Spontaneous
  Country: US (occurrence: US)
  Receive Date: 20141118
  Receipt Date: 20141118
  Transmission Date: 20150529
  Serious: Yes (Other)
  Sender: FDA-Public Use
  Company Number: US-TEVA-523294USA

PATIENT
  Age: 38 Year
  Sex: Female
  Weight: 65.83 kg

DRUGS (1)
  1. PARAGARD T380A [Suspect]
     Active Substance: COPPER
     Indication: CONTRACEPTION
     Route: 015
     Dates: start: 20140825, end: 20140829

REACTIONS (7)
  - Neck pain [Not Recovered/Not Resolved]
  - Uterine perforation [Recovered/Resolved]
  - Medical device complication [Recovered/Resolved]
  - Headache [Not Recovered/Not Resolved]
  - Procedural pain [Unknown]
  - Uterine spasm [Not Recovered/Not Resolved]
  - Musculoskeletal pain [Not Recovered/Not Resolved]

NARRATIVE: CASE EVENT DATE: 20140825
